FAERS Safety Report 9122952 (Version 2)
Quarter: 2013Q1

REPORT INFORMATION
  Report Type: Spontaneous
  Country: US (occurrence: None)
  Receive Date: 20130130
  Receipt Date: 20130207
  Transmission Date: 20140127
  Serious: Yes (Hospitalization)
  Sender: FDA-Public Use
  Company Number: 1301-116

PATIENT
  Age: 75 Year
  Sex: Female

DRUGS (1)
  1. EYLEA (AFLIBERCEPT) (INJECTION) (AFLIBERCEPT) [Suspect]
     Indication: AGE-RELATED MACULAR DEGENERATION
     Dosage: INTRAVITREAL
     Dates: start: 20121005

REACTIONS (12)
  - Joint swelling [None]
  - Swelling face [None]
  - Mucosal inflammation [None]
  - Mouth ulceration [None]
  - Rash erythematous [None]
  - Hypotension [None]
  - Hyponatraemia [None]
  - Leukopenia [None]
  - Thrombocytopenia [None]
  - Viral infection [None]
  - Stevens-Johnson syndrome [None]
  - Rash generalised [None]
